FAERS Safety Report 7222680-8 (Version None)
Quarter: 2011Q1

REPORT INFORMATION
  Report Type: 
  Country: None (occurrence: None)
  Receive Date: 20110106
  Receipt Date: 20110106
  Transmission Date: 20110831
  Serious: Yes (Life-Threatening, Disabling, Other)
  Sender: FDA-Public Use
  Company Number: None

PATIENT
  Sex: Male
  Weight: 79.5 kg

DRUGS (4)
  1. CELEBREX [Suspect]
     Indication: RHEUMATOID ARTHRITIS
     Dosage: 200 MG 2 TIMES/ DAY ORAL
     Route: 048
     Dates: start: 20101112
  2. CELEBREX [Suspect]
     Indication: ANKYLOSING SPONDYLITIS
     Dosage: 200 MG 2 TIMES/ DAY ORAL
     Route: 048
     Dates: start: 20101112
  3. CELEBREX [Suspect]
     Indication: RHEUMATOID ARTHRITIS
     Dosage: 200 MG 2 TIMES/ DAY ORAL
     Route: 048
     Dates: start: 20100517
  4. CELEBREX [Suspect]
     Indication: ANKYLOSING SPONDYLITIS
     Dosage: 200 MG 2 TIMES/ DAY ORAL
     Route: 048
     Dates: start: 20100517

REACTIONS (1)
  - PSORIASIS [None]
